FAERS Safety Report 18272777 (Version 1)
Quarter: 2020Q3

REPORT INFORMATION
  Report Type: Spontaneous
  Country: US (occurrence: US)
  Receive Date: 20200916
  Receipt Date: 20200916
  Transmission Date: 20201103
  Serious: Yes (Hospitalization)
  Sender: FDA-Public Use
  Company Number: None

PATIENT
  Sex: Female

DRUGS (1)
  1. VERZENIO [Suspect]
     Active Substance: ABEMACICLIB
     Route: 048
     Dates: start: 20200722

REACTIONS (10)
  - Diarrhoea [None]
  - Abdominal pain [None]
  - Bladder pain [None]
  - Fatigue [None]
  - Dizziness [None]
  - Cystitis noninfective [None]
  - Heart rate increased [None]
  - Asthenia [None]
  - Dyspnoea [None]
  - Therapy interrupted [None]
